FAERS Safety Report 8966464 (Version 2)
Quarter: 2012Q4

REPORT INFORMATION
  Report Type: 
  Country: GB (occurrence: GB)
  Receive Date: 20121217
  Receipt Date: 20121228
  Transmission Date: 20130627
  Serious: Yes (Other)
  Sender: FDA-Public Use
  Company Number: GB-ELI_LILLY_AND_COMPANY-GB201212001133

PATIENT
  Age: 64 Year
  Sex: Male

DRUGS (1)
  1. ZYPADHERA [Suspect]
     Dosage: UNK
     Dates: start: 2011

REACTIONS (9)
  - Insomnia [Unknown]
  - Heart rate increased [Unknown]
  - Dysarthria [Unknown]
  - Gait disturbance [Unknown]
  - Somnolence [Unknown]
  - Restlessness [Unknown]
  - Muscular weakness [Unknown]
  - Muscle disorder [Unknown]
  - Weight decreased [Unknown]
